FAERS Safety Report 7223630-0 (Version None)
Quarter: 2011Q1

REPORT INFORMATION
  Report Type: 
  Country: None (occurrence: None)
  Receive Date: 20110112
  Receipt Date: 20100913
  Transmission Date: 20110831
  Serious: No
  Sender: FDA-Public Use
  Company Number: US-ALLERGAN-1011859US

PATIENT
  Sex: Female

DRUGS (5)
  1. RESTASIS [Suspect]
     Indication: LACRIMATION DECREASED
     Dosage: 2 GTT, BID
     Route: 047
     Dates: start: 20100301
  2. REFRESH PM                         /00880201/ [Concomitant]
  3. REFRESH PLUS [Concomitant]
  4. SYSTANE [Concomitant]
  5. CLEAR EYES PLUS [Concomitant]

REACTIONS (3)
  - DRUG INEFFECTIVE [None]
  - INCORRECT DOSE ADMINISTERED [None]
  - EYELASH DISCOLOURATION [None]
